FAERS Safety Report 8625101-3 (Version None)
Quarter: 2012Q3

REPORT INFORMATION
  Report Type: 
  Country: None (occurrence: None)
  Receive Date: 20120827
  Receipt Date: 20120821
  Transmission Date: 20120928
  Serious: Yes (Other)
  Sender: FDA-Public Use
  Company Number: US-GLAXOSMITHKLINE-A0990442A

PATIENT
  Age: 88 Year
  Sex: Male

DRUGS (20)
  1. LASIX [Concomitant]
  2. ALPHAGAN [Concomitant]
  3. KLONOPIN [Concomitant]
  4. IRON [Concomitant]
  5. CALCIUM [Concomitant]
  6. VITAMIN D [Concomitant]
  7. ASPIRIN [Concomitant]
  8. LATANOPROST [Concomitant]
  9. ZOCOR [Concomitant]
  10. VITAMIN B-12 [Concomitant]
  11. FLUTICASONE PROPIONATE [Suspect]
     Indication: DYSPNOEA
     Dosage: 1PUFF TWICE PER DAY
     Route: 055
     Dates: start: 20120201, end: 20120817
  12. AVODART [Concomitant]
  13. FOSAMAX [Concomitant]
  14. CASODEX [Concomitant]
  15. LUPRON [Concomitant]
  16. ACCUPRIL [Concomitant]
  17. MULTI-VITAMIN [Concomitant]
  18. FISH OIL [Concomitant]
  19. COREG [Concomitant]
  20. VITAMIN A [Concomitant]

REACTIONS (3)
  - RHINORRHOEA [None]
  - VISUAL ACUITY REDUCED [None]
  - VISION BLURRED [None]
